FAERS Safety Report 6712931-8 (Version None)
Quarter: 2010Q2

REPORT INFORMATION
  Report Type: 
  Country: None (occurrence: None)
  Receive Date: 20100505
  Receipt Date: 20100505
  Transmission Date: 20101027
  Serious: No
  Sender: FDA-Public Use
  Company Number: None

PATIENT

DRUGS (1)
  1. MOTRIN [Suspect]
     Route: 048

REACTIONS (8)
  - ANGINA PECTORIS [None]
  - CARDIAC DISORDER [None]
  - COLD SWEAT [None]
  - CRYING [None]
  - FEELING JITTERY [None]
  - MYDRIASIS [None]
  - PRODUCT QUALITY ISSUE [None]
  - RESTLESSNESS [None]
